FAERS Safety Report 12392088 (Version 2)
Quarter: 2016Q2

REPORT INFORMATION
  Report Type: Spontaneous
  Country: US (occurrence: US)
  Receive Date: 20160523
  Receipt Date: 20160615
  Transmission Date: 20160815
  Serious: Yes (Hospitalization, Other)
  Sender: FDA-Public Use
  Company Number: US-ROCHE-1761857

PATIENT
  Age: 87 Year
  Sex: Male
  Weight: 71.73 kg

DRUGS (1)
  1. ERIVEDGE [Suspect]
     Active Substance: VISMODEGIB
     Indication: BASAL CELL CARCINOMA
     Route: 048
     Dates: start: 20160111

REACTIONS (2)
  - Sepsis [Unknown]
  - Fall [Unknown]

NARRATIVE: CASE EVENT DATE: 20160502
